FAERS Safety Report 8782253 (Version 1)
Quarter: 2012Q4

REPORT INFORMATION
  Report Type: 
  Country: US (occurrence: US)
  Receive Date: 20120913
  Receipt Date: 20120913
  Transmission Date: 20130627
  Serious: No
  Sender: FDA-Public Use
  Company Number: US-VERTEX PHARMACEUTICAL INC.-2012-019912

PATIENT
  Age: 56 Year
  Sex: Female
  Weight: 70.3 kg

DRUGS (12)
  1. INCIVEK [Suspect]
     Indication: HEPATITIS C
     Dosage: 750 mg, tid
     Dates: start: 20120605
  2. PEGASYS [Concomitant]
     Indication: HEPATITIS C
     Dosage: 180 ?g, UNK
     Route: 058
     Dates: start: 20120605
  3. RIBAVIRIN [Concomitant]
     Indication: HEPATITIS C
     Dosage: 600 mg, bid
     Route: 048
     Dates: start: 20120605
  4. LISINOPRIL [Concomitant]
     Route: 048
  5. JANUVIA [Concomitant]
     Indication: DIABETES MELLITUS
     Route: 048
  6. METFORMIN [Concomitant]
     Route: 048
  7. CARVEDILOL [Concomitant]
     Route: 048
  8. RANITIDINE [Concomitant]
     Route: 048
  9. HYDROCHLOROTHIAZIDE [Concomitant]
     Dosage: UNK
     Route: 048
  10. FOLIC ACID [Concomitant]
     Dosage: UNK
     Route: 048
  11. GLYBURIDE [Concomitant]
     Dosage: UNK
     Route: 048
  12. ASPIRIN [Concomitant]
     Dosage: UNK
     Route: 048

REACTIONS (3)
  - Infection [Not Recovered/Not Resolved]
  - Trichorrhexis [Not Recovered/Not Resolved]
  - Pruritus [Not Recovered/Not Resolved]
